FAERS Safety Report 7354306-7 (Version None)
Quarter: 2011Q1

REPORT INFORMATION
  Report Type: 
  Country: None (occurrence: None)
  Receive Date: 20110316
  Receipt Date: 20110307
  Transmission Date: 20110831
  Serious: No
  Sender: FDA-Public Use
  Company Number: US-BIOGENIDEC-2011BI008792

PATIENT
  Sex: Female

DRUGS (2)
  1. AVONEX [Suspect]
     Indication: MULTIPLE SCLEROSIS
     Route: 030
     Dates: start: 19980501, end: 20050101
  2. AVONEX [Suspect]
     Route: 030
     Dates: start: 20050101, end: 20110213

REACTIONS (3)
  - CENTRAL NERVOUS SYSTEM LESION [None]
  - PARAESTHESIA [None]
  - HYPOAESTHESIA [None]
